FAERS Safety Report 4520448-4 (Version None)
Quarter: 2004Q4

REPORT INFORMATION
  Report Type: 
  Country: None (occurrence: None)
  Receive Date: 20041203
  Receipt Date: 20041124
  Transmission Date: 20050328
  Serious: Yes (Death)
  Sender: FDA-Public Use
  Company Number: S04-USA-05603-01

PATIENT
  Age: 35 Year
  Sex: Male

DRUGS (2)
  1. LEXAPRO [Suspect]
     Indication: MAJOR DEPRESSION
     Dosage: 20 MG QAM PO
     Route: 048
     Dates: start: 20040720, end: 20040803
  2. AMBIEN [Concomitant]

REACTIONS (3)
  - COMPLETED SUICIDE [None]
  - DEPRESSION [None]
  - INJURY ASPHYXIATION [None]
